FAERS Safety Report 4860932-7 (Version None)
Quarter: 2005Q4

REPORT INFORMATION
  Report Type: 
  Country: None (occurrence: None)
  Receive Date: 20051216
  Receipt Date: 20051216
  Transmission Date: 20060501
  Serious: Yes (Hospitalization)
  Sender: FDA-Public Use
  Company Number: None

PATIENT
  Sex: Male
  Weight: 94 kg

DRUGS (9)
  1. GLEEVEC [Suspect]
     Indication: ACUTE MYELOID LEUKAEMIA RECURRENT
     Dosage: 300 MG  QD   PO
     Route: 048
     Dates: start: 20051027
  2. OXYCODONE [Concomitant]
  3. NEXIUM [Concomitant]
  4. GLEEVEC [Concomitant]
  5. ATIVAN [Concomitant]
  6. ACYCLOVIR [Concomitant]
  7. HYDROCHLOROTHIAZIDE [Concomitant]
  8. CARDIZEM CD [Concomitant]
  9. MULTI-VITAMIN [Concomitant]

REACTIONS (8)
  - BACTERIA BLOOD IDENTIFIED [None]
  - BLOOD CREATININE INCREASED [None]
  - BLOOD PRODUCT TRANSFUSION [None]
  - CHILLS [None]
  - FUNGAL RASH [None]
  - HEADACHE [None]
  - NAUSEA [None]
  - UNEVALUABLE EVENT [None]
